FAERS Safety Report 11471720 (Version 1)
Quarter: 2015Q3

REPORT INFORMATION
  Report Type: Report from Study
  Country: BR (occurrence: BR)
  Receive Date: 20150908
  Receipt Date: 20150908
  Transmission Date: 20151125
  Serious: Yes (Other)
  Sender: FDA-Public Use
  Company Number: PHHY2015BR106203

PATIENT
  Sex: Female
  Weight: 57 kg

DRUGS (2)
  1. ZELMAC [Suspect]
     Active Substance: TEGASEROD
     Indication: IRRITABLE BOWEL SYNDROME
     Dosage: 3 DF (TEGASEROD 6 MG), QD (STOPPED 2 YEARS AGO)
     Route: 065
     Dates: start: 2005
  2. ZELMAC [Suspect]
     Active Substance: TEGASEROD
     Dosage: 3 DF (TEGASEROD 6 MG), QD (STARTED FROM ONE WEEK AGO)
     Route: 065

REACTIONS (3)
  - Diabetes mellitus [Unknown]
  - Abdominal distension [Unknown]
  - Visual impairment [Unknown]
